FAERS Safety Report 6149639-6 (Version None)
Quarter: 2009Q2

REPORT INFORMATION
  Report Type: 
  Country: None (occurrence: None)
  Receive Date: 20090407
  Receipt Date: 20090304
  Transmission Date: 20091009
  Serious: No
  Sender: FDA-Public Use
  Company Number: ACTA009010

PATIENT
  Age: 41 Year
  Sex: Female

DRUGS (1)
  1. SORIATANE [Suspect]
     Indication: PSORIASIS
     Dosage: 10 MG MILLIGRAM(S) DOSAGE(S)=1 INTERVAL=1 DAY(S) ORAL
     Route: 048
     Dates: start: 20080305, end: 20080822

REACTIONS (2)
  - DRUG EXPOSURE DURING PREGNANCY [None]
  - PREGNANCY [None]
